FAERS Safety Report 8215376-7 (Version None)
Quarter: 2012Q1

REPORT INFORMATION
  Report Type: 
  Country: None (occurrence: None)
  Receive Date: 20120316
  Receipt Date: 20120312
  Transmission Date: 20120608
  Serious: Yes (Death, Hospitalization)
  Sender: FDA-Public Use
  Company Number: US-CELGENEUS-163-21880-12031386

PATIENT
  Age: 81 Year
  Sex: Male

DRUGS (18)
  1. FLUTICASONE FUROATE [Concomitant]
     Route: 045
  2. TRAZODONE HCL [Concomitant]
     Route: 065
  3. TEMAZEPAM [Concomitant]
     Route: 065
  4. TERAZOSIN HCL [Concomitant]
     Route: 065
  5. MEGESTROL ACETATE [Concomitant]
     Route: 065
  6. MAGNESIUM [Concomitant]
     Route: 065
  7. COMBIVENT [Concomitant]
     Route: 065
  8. POTASSIUM [Concomitant]
     Route: 065
  9. PROCHLORPERAZINE [Concomitant]
     Route: 065
  10. MORPHINE [Concomitant]
     Route: 065
  11. REVLIMID [Suspect]
     Indication: MULTIPLE MYELOMA
     Dosage: 25 MILLIGRAM
     Route: 048
     Dates: start: 20111201, end: 20120205
  12. NORCO [Concomitant]
     Route: 065
  13. DECADRON [Concomitant]
     Route: 065
     Dates: start: 20111201
  14. ASPIRIN [Concomitant]
     Route: 065
  15. FAMOTIDINE [Concomitant]
     Route: 065
  16. LEVOTHYROXINE SODIUM [Concomitant]
     Route: 065
  17. FUROSEMIDE [Concomitant]
     Route: 065
  18. ALBUTEROL [Concomitant]
     Route: 055

REACTIONS (3)
  - FALL [None]
  - DEATH [None]
  - MENTAL STATUS CHANGES [None]
